FAERS Safety Report 7394568-3 (Version None)
Quarter: 2011Q2

REPORT INFORMATION
  Report Type: 
  Country: None (occurrence: None)
  Receive Date: 20110405
  Receipt Date: 20110309
  Transmission Date: 20111010
  Serious: Yes (Other)
  Sender: FDA-Public Use
  Company Number: US-BAYER-2011-009053

PATIENT
  Sex: Male

DRUGS (37)
  1. ADVICOR [Concomitant]
     Dosage: UNK
     Dates: start: 20060911
  2. LEVOPHED [Concomitant]
     Dosage: UNK
     Dates: start: 20061213
  3. NITROGLYCERIN [Concomitant]
     Dosage: UNK
     Dates: start: 20061213
  4. DIGOXIN [Concomitant]
     Indication: CARDIAC FAILURE CONGESTIVE
     Dosage: 0.25 MG, QD
     Route: 048
  5. LASIX [Concomitant]
     Indication: CARDIAC FAILURE CONGESTIVE
     Dosage: 80MG EVERY MORNING
     Route: 048
  6. LISINOPRIL [Concomitant]
     Indication: CARDIAC FAILURE CONGESTIVE
     Dosage: 5 MG, QD
     Route: 048
  7. ACETYLSALICYLIC ACID SRT [Concomitant]
     Dosage: 81 MG, QD
     Route: 048
     Dates: start: 20060911
  8. ZESTRIL [Concomitant]
     Dosage: 2.5 MG, QD
     Dates: start: 20060911
  9. LOPRESSOR [Concomitant]
     Dosage: 25 MG, BID
     Dates: start: 20061126
  10. MONOPRIL [Concomitant]
     Dosage: 5 MG, QD
     Dates: start: 20061126
  11. TRASYLOL [Suspect]
     Indication: TRICUSPID VALVE REPLACEMENT
  12. DIGOXIN [Concomitant]
     Dosage: 0.125 MG, QD
     Dates: start: 20060911
  13. LASIX [Concomitant]
     Dosage: 40MG EVERY EVENING
     Route: 048
  14. CARVEDILOL [Concomitant]
     Indication: CARDIAC FAILURE CONGESTIVE
     Dosage: 3.125 MG, BID
     Route: 048
  15. EPINEPHRINE [Concomitant]
     Dosage: UNK
     Dates: start: 20061213
  16. LASIX [Concomitant]
     Dosage: 40 MG, BID
     Dates: start: 20060911
  17. GLIPIZIDE [Concomitant]
     Indication: DIABETES MELLITUS
     Dosage: 5MG TWICE DAILY BEFORE MEALS
     Route: 048
     Dates: start: 20061126
  18. EFFEXOR [Concomitant]
     Indication: BIPOLAR II DISORDER
     Dosage: 75 MG, QD
     Dates: start: 20061126
  19. NITROGLYCERIN [Concomitant]
     Indication: CHEST PAIN
     Dosage: 0.4MG 1EVERY 5 MINUTES UP TO THREE TABLETS
     Route: 060
  20. LIPITOR [Concomitant]
     Dosage: 10 MG, QD
     Dates: start: 20061206
  21. NIACIN [Concomitant]
     Indication: BLOOD CHOLESTEROL ABNORMAL
     Dosage: 1000MG AT BEDTIME
     Route: 048
  22. GLUCOTROL [Concomitant]
     Dosage: 5 MG IN AM
     Dates: start: 20061206
  23. HEPARIN SODIUM [Concomitant]
     Dosage: UNK
     Route: 041
     Dates: start: 20061206
  24. LASIX [Concomitant]
     Dosage: 40 MG, BID
     Route: 042
     Dates: start: 20061206
  25. COUMADIN [Concomitant]
     Indication: ATRIAL FIBRILLATION
     Dosage: 5 MG, QD
     Route: 048
  26. ATENOLOL [Concomitant]
     Dosage: 50 MG, QD
  27. K-DUR [Concomitant]
     Dosage: 20 MEQ, BID
  28. ZAROXOLYN [Concomitant]
     Dosage: 2.5 MG, QD
     Dates: start: 20061206
  29. VENLAFAXINE HCL [Concomitant]
     Dosage: 150MG 1CAPSULE DAILY
     Route: 048
  30. COREG [Concomitant]
     Dosage: 3.125 MG, BID
     Dates: start: 20060911
  31. PRIMACOR [Concomitant]
     Dosage: UNK
     Dates: start: 20061213
  32. TRASYLOL [Suspect]
     Indication: AORTIC VALVE REPLACEMENT
     Dosage: UNK
     Route: 042
  33. LOVASTATIN [Concomitant]
     Indication: BLOOD CHOLESTEROL ABNORMAL
     Dosage: 20 MG AT BEDTIME
     Route: 048
  34. ALDACTONE [Concomitant]
     Dosage: 25 MG, QD
     Dates: start: 20061206
  35. DOBUTAMINE [Concomitant]
     Dosage: UNK
     Route: 041
     Dates: start: 20061206
  36. KLONOPIN [Concomitant]
     Dosage: 1 MG AT BEDTIME
     Dates: start: 20061206
  37. TECHNETIUM TC-99M MEBROFENIN [Concomitant]
     Dosage: UNK
     Dates: start: 20060801

REACTIONS (13)
  - FEAR OF DEATH [None]
  - UNEVALUABLE EVENT [None]
  - INJURY [None]
  - NERVOUSNESS [None]
  - MULTI-ORGAN FAILURE [None]
  - RENAL INJURY [None]
  - ANXIETY [None]
  - EMOTIONAL DISTRESS [None]
  - RENAL FAILURE [None]
  - FEAR [None]
  - PAIN [None]
  - DEPRESSION [None]
  - ANHEDONIA [None]
